FAERS Safety Report 9687672 (Version 1)
Quarter: 2013Q4

REPORT INFORMATION
  Report Type: Spontaneous
  Country: US (occurrence: None)
  Receive Date: 20131113
  Receipt Date: 20131113
  Transmission Date: 20140711
  Serious: Yes (Hospitalization)
  Sender: FDA-Public Use
  Company Number: None

PATIENT
  Age: 69 Year
  Sex: Male
  Weight: 107 kg

DRUGS (1)
  1. FERAHEME [Suspect]
     Indication: ANAEMIA
     Dosage: ONE DOSE
     Route: 042

REACTIONS (2)
  - Dyspnoea [None]
  - Paraesthesia oral [None]
